FAERS Safety Report 5684143-0 (Version None)
Quarter: 2008Q1

REPORT INFORMATION
  Report Type: 
  Country: None (occurrence: None)
  Receive Date: 20080328
  Receipt Date: 20070508
  Transmission Date: 20080703
  Serious: No
  Sender: FDA-Public Use
  Company Number: US-AMGEN-KDL223530

PATIENT
  Sex: Female

DRUGS (3)
  1. NEULASTA [Suspect]
     Indication: CHEMOTHERAPY
     Route: 058
     Dates: start: 20070316
  2. ADRIAMYCIN PFS [Concomitant]
     Dates: start: 20070315
  3. CYTOXAN [Concomitant]
     Dates: start: 20070315

REACTIONS (4)
  - HYPERSENSITIVITY [None]
  - PRURITUS [None]
  - RASH [None]
  - RASH PAPULAR [None]
